FAERS Safety Report 15057854 (Version 1)
Quarter: 2018Q2

REPORT INFORMATION
  Report Type: Spontaneous
  Country: DE (occurrence: DE)
  Receive Date: 20180625
  Receipt Date: 20180625
  Transmission Date: 20180711
  Serious: Yes (Other)
  Sender: FDA-Public Use
  Company Number: DE-009507513-1806DEU007741

PATIENT
  Age: 76 Year
  Sex: Female

DRUGS (2)
  1. TRAMETINIB [Concomitant]
     Active Substance: TRAMETINIB
     Indication: DUCTAL ADENOCARCINOMA OF PANCREAS
     Dosage: 2 MG, QD
  2. PEMBROLIZUMAB. [Suspect]
     Active Substance: PEMBROLIZUMAB
     Indication: DUCTAL ADENOCARCINOMA OF PANCREAS
     Dosage: 200 MG FLAT DOSE

REACTIONS (3)
  - Glucocorticoid deficiency [Unknown]
  - Off label use [Unknown]
  - Gastrointestinal toxicity [Unknown]
